FAERS Safety Report 4763874-0 (Version None)
Quarter: 2005Q3

REPORT INFORMATION
  Report Type: 
  Country: None (occurrence: None)
  Receive Date: 20050906
  Receipt Date: 20050522
  Transmission Date: 20060218
  Serious: No
  Sender: FDA-Public Use
  Company Number: 2005-BP-08484BP

PATIENT
  Age: 65 Year
  Sex: Male

DRUGS (5)
  1. SPIRIVA [Suspect]
     Indication: CHRONIC OBSTRUCTIVE PULMONARY DISEASE
     Dosage: 18 MCG (18 MCG) PO
     Route: 048
  2. LIPITOR [Concomitant]
  3. AVALIDE (KARVEA HCT) [Concomitant]
  4. TOPROL-XL [Concomitant]
  5. LASIX [Concomitant]

REACTIONS (2)
  - FLUSHING [None]
  - INCORRECT ROUTE OF DRUG ADMINISTRATION [None]
